FAERS Safety Report 8110561-7 (Version None)
Quarter: 2012Q1

REPORT INFORMATION
  Report Type: 
  Country: None (occurrence: None)
  Receive Date: 20120203
  Receipt Date: 20120130
  Transmission Date: 20120608
  Serious: No
  Sender: FDA-Public Use
  Company Number: US-PFIZER INC-2012025586

PATIENT
  Sex: Female
  Weight: 72.6 kg

DRUGS (2)
  1. GLIPIZIDE [Concomitant]
     Indication: DIABETES MELLITUS
     Dosage: 5 MG, UNK
  2. SUTENT [Suspect]
     Indication: RENAL CANCER
     Dosage: 50 MG, 1X/DAY
     Route: 048
     Dates: start: 20110601, end: 20120103

REACTIONS (13)
  - EPISTAXIS [None]
  - NAUSEA [None]
  - ABDOMINAL PAIN UPPER [None]
  - PANCREATIC DISORDER [None]
  - MALAISE [None]
  - BLOOD GLUCOSE DECREASED [None]
  - MUSCULOSKELETAL CHEST PAIN [None]
  - VOMITING [None]
  - DIARRHOEA [None]
  - LETHARGY [None]
  - STOMATITIS [None]
  - GLOSSODYNIA [None]
  - CONSTIPATION [None]
